FAERS Safety Report 16840408 (Version 1)
Quarter: 2019Q3

REPORT INFORMATION
  Report Type: Spontaneous
  Country: US (occurrence: US)
  Receive Date: 20190923
  Receipt Date: 20190923
  Transmission Date: 20191005
  Serious: No
  Sender: FDA-Public Use
  Company Number: US-VIIV HEALTHCARE LIMITED-US2019170946

PATIENT
  Age: 37 Year
  Sex: Female

DRUGS (1)
  1. TRIUMEQ [Suspect]
     Active Substance: ABACAVIR SULFATE\DOLUTEGRAVIR SODIUM\LAMIVUDINE
     Indication: PRODUCT USED FOR UNKNOWN INDICATION
     Dosage: UNK
     Route: 065
     Dates: start: 201904

REACTIONS (3)
  - Malaise [Not Recovered/Not Resolved]
  - Cholecystectomy [Recovering/Resolving]
  - Pain [Unknown]

NARRATIVE: CASE EVENT DATE: 201909
